FAERS Safety Report 6027723-5 (Version None)
Quarter: 2009Q1

REPORT INFORMATION
  Report Type: 
  Country: None (occurrence: None)
  Receive Date: 20090105
  Receipt Date: 20081028
  Transmission Date: 20090719
  Serious: No
  Sender: FDA-Public Use
  Company Number: US-BAYER-200829387GPV

PATIENT
  Age: 87 Year
  Sex: Female

DRUGS (2)
  1. SORAFENIB [Suspect]
     Indication: METASTATIC MALIGNANT MELANOMA
     Route: 048
  2. DACARBAZINE [Concomitant]
     Indication: METASTATIC MALIGNANT MELANOMA
     Route: 065

REACTIONS (1)
  - POLYCYTHAEMIA [None]
